FAERS Safety Report 8652856 (Version 4)
Quarter: 2012Q4

REPORT INFORMATION
  Report Type: 
  Country: GB (occurrence: GB)
  Receive Date: 20120706
  Receipt Date: 20120912
  Transmission Date: 20130627
  Serious: Yes (Other)
  Sender: FDA-Public Use
  Company Number: GB-GLAXOSMITHKLINE-B0811321A

PATIENT
  Age: 68 Year
  Sex: Female

DRUGS (9)
  1. ACYCLOVIR [Suspect]
     Indication: ORAL HERPES
     Route: 048
     Dates: start: 20120315, end: 20120322
  2. OMEPRAZOLE [Suspect]
     Indication: GASTRIC DISORDER
     Route: 048
     Dates: start: 20120315
  3. FLUCONAZOLE [Suspect]
     Indication: CANDIDIASIS
     Route: 048
     Dates: start: 20120315, end: 20120322
  4. VELCADE [Suspect]
     Indication: CHEMOTHERAPY
     Dosage: 1IUAX Weekly
     Route: 042
     Dates: start: 20120315
  5. DEXAMETHASON [Concomitant]
     Indication: STEROID THERAPY
     Route: 048
     Dates: start: 20120315
  6. ALLOPURINOL [Concomitant]
     Indication: GOUT
     Route: 048
     Dates: start: 20120315
  7. CALCEOS [Concomitant]
     Indication: MINERAL SUPPLEMENTATION
     Route: 048
  8. OXYCODONE [Concomitant]
     Indication: PAIN
     Route: 048
  9. MOVICOL [Concomitant]
     Indication: CONSTIPATION
     Route: 065

REACTIONS (2)
  - Liver function test abnormal [Recovered/Resolved]
  - Hepatic enzyme increased [Unknown]
